FAERS Safety Report 6983671-5 (Version None)
Quarter: 2010Q3

REPORT INFORMATION
  Report Type: 
  Country: None (occurrence: None)
  Receive Date: 20100914
  Receipt Date: 20050225
  Transmission Date: 20110219
  Serious: Yes (Other)
  Sender: FDA-Public Use
  Company Number: US-WYE-H07075808

PATIENT
  Sex: Male

DRUGS (7)
  1. IBUPROFEN [Suspect]
     Indication: PAIN
     Dosage: UNKNOWN
     Route: 048
  2. IBUPROFEN [Suspect]
     Indication: ANTICOAGULANT THERAPY
  3. OXYCONTIN [Concomitant]
     Indication: PAIN
     Dosage: UNKNOWN DOSE TWICE DAILY
     Route: 048
  4. NEURONTIN [Suspect]
     Indication: FIBROMYALGIA
     Dosage: 100 MG EVERY MORNING, 100 MG EVERY AFTERNOON, AND 300 MG EVERY EVENING
     Route: 048
     Dates: start: 20030219, end: 20030101
  5. NEURONTIN [Suspect]
     Route: 048
     Dates: start: 20030101, end: 20030302
  6. BENADRYL [Suspect]
     Indication: PROPHYLAXIS
     Dosage: UNKNOWN DOSE X 1
     Route: 042
     Dates: start: 20020101, end: 20020101
  7. BENADRYL [Suspect]
     Indication: RASH
     Dosage: 50 MG
     Route: 048
     Dates: start: 20030302

REACTIONS (9)
  - BLISTER [None]
  - CHEILITIS [None]
  - DYSPHAGIA [None]
  - ERYTHEMA [None]
  - LIP SWELLING [None]
  - PRURITUS [None]
  - RASH [None]
  - SWELLING FACE [None]
  - SWOLLEN TONGUE [None]
